FAERS Safety Report 6567774-5 (Version None)
Quarter: 2010Q1

REPORT INFORMATION
  Report Type: 
  Country: None (occurrence: None)
  Receive Date: 20100203
  Receipt Date: 20100125
  Transmission Date: 20100710
  Serious: Yes (Hospitalization)
  Sender: FDA-Public Use
  Company Number: GB-PFIZER INC-2008063836

PATIENT
  Age: 80 Year
  Sex: Male
  Weight: 69 kg

DRUGS (11)
  1. SUNITINIB MALATE [Suspect]
     Indication: RENAL CELL CARCINOMA
     Dosage: 50 MG, UNK
     Route: 048
     Dates: start: 20060607
  2. SUNITINIB MALATE [Suspect]
     Dosage: 37.5 MG, UNK
     Route: 048
  3. AMLODIPINE [Concomitant]
     Dosage: 10 MG, UNK
     Route: 048
     Dates: start: 20010101
  4. LISINOPRIL [Concomitant]
     Route: 048
     Dates: start: 20040101
  5. GABAPENTIN [Concomitant]
     Route: 048
     Dates: start: 20040101
  6. VALPROATE SODIUM [Concomitant]
     Route: 048
     Dates: start: 20040101
  7. AMITRIPTYLINE HCL [Concomitant]
     Route: 048
     Dates: start: 20040101
  8. TRAMADOL HCL [Concomitant]
     Route: 048
     Dates: start: 20010101
  9. HYDROCORTISONE [Concomitant]
     Route: 048
     Dates: start: 19960101
  10. FLUDROCORTISONE [Concomitant]
     Route: 048
     Dates: start: 19960101
  11. ATENOLOL [Concomitant]
     Dosage: 25 MG, UNK
     Route: 048
     Dates: start: 20060621

REACTIONS (2)
  - ACUTE MYOCARDIAL INFARCTION [None]
  - PLEURAL EFFUSION [None]
